FAERS Safety Report 9053277 (Version 1)
Quarter: 2013Q1

REPORT INFORMATION
  Report Type: Spontaneous
  Country: DE (occurrence: DE)
  Receive Date: 20130207
  Receipt Date: 20130207
  Transmission Date: 20140127
  Serious: Yes (Hospitalization, Other)
  Sender: FDA-Public Use
  Company Number: DE-B.I. PHARMACEUTICALS,INC./RIDGEFIELD-2013-DE-00346DE

PATIENT
  Age: 63 None
  Sex: Male
  Weight: 70 kg

DRUGS (4)
  1. SPIRIVA [Suspect]
     Indication: CHRONIC OBSTRUCTIVE PULMONARY DISEASE
     Dosage: 1-2 PUFFS TIMES DAILY
     Dates: start: 2001
  2. SPIRIVA [Suspect]
     Indication: CHRONIC OBSTRUCTIVE PULMONARY DISEASE
  3. FOSTER [Suspect]
  4. SYMBICORT [Suspect]

REACTIONS (11)
  - Myocardial infarction [Recovered/Resolved]
  - Shock haemorrhagic [Recovered/Resolved]
  - Retroperitoneal haemorrhage [Recovered/Resolved]
  - Retroperitoneal haematoma [Unknown]
  - Blood creatine phosphokinase increased [Unknown]
  - Troponin increased [Unknown]
  - Product quality issue [Unknown]
  - Dysgeusia [Unknown]
  - Olfactory nerve disorder [Unknown]
  - Oral discomfort [Unknown]
  - Tachycardia [Unknown]
